FAERS Safety Report 9431556 (Version 2)
Quarter: 2015Q1

REPORT INFORMATION
  Report Type: Spontaneous
  Country: IN (occurrence: IN)
  Receive Date: 20130731
  Receipt Date: 20150107
  Transmission Date: 20150721
  Serious: Yes (Death, Hospitalization)
  Sender: FDA-Public Use
  Company Number: PHHY2013IN080356

PATIENT
  Age: 29 Year
  Sex: Female

DRUGS (1)
  1. WARFARIN [Suspect]
     Active Substance: WARFARIN
     Indication: PULMONARY ARTERY THROMBOSIS
     Dosage: 2.5 MG, QD
     Route: 048

REACTIONS (8)
  - Eschar [Unknown]
  - Pulmonary tuberculosis [Fatal]
  - HIV infection [Fatal]
  - General physical health deterioration [Unknown]
  - Erythema [Unknown]
  - Ecchymosis [Unknown]
  - Skin necrosis [Unknown]
  - Skin lesion [Unknown]
